FAERS Safety Report 6138567-8 (Version None)
Quarter: 2009Q1

REPORT INFORMATION
  Report Type: 
  Country: None (occurrence: None)
  Receive Date: 20090327
  Receipt Date: 20090316
  Transmission Date: 20090719
  Serious: Yes (Other)
  Sender: FDA-Public Use
  Company Number: 1000005449

PATIENT
  Age: 79 Year
  Sex: Female

DRUGS (6)
  1. MEMANTINE HCL [Suspect]
  2. LASIX [Suspect]
  3. PREVISCAN [Concomitant]
  4. STABLON [Concomitant]
  5. ALDACTONE [Concomitant]
  6. FLECAINE [Concomitant]

REACTIONS (2)
  - PHOTOSENSITIVITY REACTION [None]
  - SKIN BURNING SENSATION [None]
